FAERS Safety Report 22161429 (Version 1)
Quarter: 2023Q1

REPORT INFORMATION
  Report Type: Spontaneous
  Country: US (occurrence: US)
  Receive Date: 20230331
  Receipt Date: 20230331
  Transmission Date: 20230418
  Serious: Yes (Other)
  Sender: FDA-Public Use
  Company Number: US-MLMSERVICE-20230320-4172619-1

PATIENT
  Age: 59 Year
  Sex: Female

DRUGS (5)
  1. PREDNISOLONE [Suspect]
     Active Substance: PREDNISOLONE
     Indication: Iris adhesions
     Dosage: FOUR TIMES PER DAY
     Route: 065
  2. DEXYCU [Suspect]
     Active Substance: DEXAMETHASONE
     Indication: Steroid therapy
     Dosage: INTRACAMERAL
     Route: 065
  3. LATANOPROST [Concomitant]
     Active Substance: LATANOPROST
     Indication: Open angle glaucoma
  4. KETOROLAC [Concomitant]
     Active Substance: KETOROLAC TROMETHAMINE
     Indication: Eye operation
     Route: 031
  5. KETOROLAC [Concomitant]
     Active Substance: KETOROLAC TROMETHAMINE
     Indication: Postoperative care

REACTIONS (3)
  - Iris atrophy [Not Recovered/Not Resolved]
  - Corectopia [Not Recovered/Not Resolved]
  - Condition aggravated [Not Recovered/Not Resolved]
